FAERS Safety Report 7405597-5 (Version None)
Quarter: 2011Q2

REPORT INFORMATION
  Report Type: 
  Country: None (occurrence: None)
  Receive Date: 20110411
  Receipt Date: 20110330
  Transmission Date: 20111010
  Serious: Yes (Hospitalization, Other)
  Sender: FDA-Public Use
  Company Number: PHHY2011DE28066

PATIENT
  Sex: Male
  Weight: 92 kg

DRUGS (10)
  1. ALISKIREN [Suspect]
     Indication: HYPERTENSION
     Dosage: 300 MG, PER DAY
     Route: 048
     Dates: start: 20081125
  2. ASPIRIN [Concomitant]
     Indication: CORONARY ARTERY DISEASE
     Dosage: 100 MG, UNK
     Route: 048
     Dates: start: 20090603
  3. AMLODIPINE [Concomitant]
     Indication: HYPERTENSION
     Dosage: 10 MG, PER DAY
     Route: 048
     Dates: start: 20090603
  4. RAMIPRIL [Concomitant]
     Indication: HYPERTENSION
     Dosage: 300 MG, PER DAY
     Route: 048
     Dates: start: 20090603
  5. DIURETICS [Concomitant]
  6. BETA BLOCKING AGENTS [Concomitant]
  7. SIMVASTATIN [Concomitant]
     Indication: HYPERLIPIDAEMIA
     Dosage: 40 MG, PER DAY
     Route: 048
     Dates: start: 20090603
  8. PIRITANID [Concomitant]
     Indication: HYPERTENSION
     Dosage: 6 MG, PER DAY
     Route: 048
     Dates: start: 20090603
  9. AMIODARONE HCL [Concomitant]
     Indication: VENTRICULAR EXTRASYSTOLES
     Dosage: 200 MG, PER DAY
     Route: 048
     Dates: start: 20090603
  10. STATINE [Concomitant]

REACTIONS (2)
  - VENTRICULAR EXTRASYSTOLES [None]
  - CORONARY ARTERY DISEASE [None]
